FAERS Safety Report 9201235 (Version 2)
Quarter: 2013Q2

REPORT INFORMATION
  Report Type: Spontaneous
  Country: US (occurrence: US)
  Receive Date: 20130401
  Receipt Date: 20130419
  Transmission Date: 20140414
  Serious: Yes (Other)
  Sender: FDA-Public Use
  Company Number: PHEH2013US007206

PATIENT
  Sex: Female

DRUGS (2)
  1. TRILEPTAL [Suspect]
     Dosage: 3 DF ON EVEN DAYS AND 3.5 DF ON ODD DAYS
  2. LYRICA [Suspect]
     Dosage: 1 DF, BID
     Route: 048

REACTIONS (3)
  - Brain neoplasm [Unknown]
  - Cerebellar tumour [Unknown]
  - Meningioma [Unknown]
